FAERS Safety Report 4280016-9 (Version None)
Quarter: 2004Q1

REPORT INFORMATION
  Report Type: 
  Country: None (occurrence: None)
  Receive Date: 20040126
  Receipt Date: 20040114
  Transmission Date: 20041129
  Serious: Yes (Death)
  Sender: FDA-Public Use
  Company Number: HQWYE323714JAN04

PATIENT
  Age: 72 Year
  Sex: Female

DRUGS (7)
  1. AMIODARONE (AMIODARONE, INJECTION) [Suspect]
     Indication: ATRIAL FIBRILLATION
     Dosage: SEE IMAGE
     Route: 042
     Dates: start: 20031122, end: 20031122
  2. AMIODARONE (AMIODARONE, INJECTION) [Suspect]
     Indication: ATRIAL FIBRILLATION
     Dosage: SEE IMAGE
     Route: 042
     Dates: start: 20031122, end: 20031123
  3. AMIODARONE (AMIODARONE, TABLET) [Suspect]
     Indication: ATRIAL FIBRILLATION
     Dosage: 200 MG 3 X PER 1 DAY ORAL
     Route: 048
     Dates: start: 20031123, end: 20031101
  4. FLUDROCORTISONE ACETATE TAB [Concomitant]
  5. ATORVASTATIN (ATORVASTATIN) [Concomitant]
  6. ASPIRIN [Concomitant]
  7. CORTISONE (CORTISONE) [Concomitant]

REACTIONS (5)
  - BONE MARROW DEPRESSION [None]
  - CARDIAC ARREST [None]
  - HEPATORENAL FAILURE [None]
  - METABOLIC ACIDOSIS [None]
  - MULTI-ORGAN FAILURE [None]
